FAERS Safety Report 8522504-2 (Version None)
Quarter: 2012Q3

REPORT INFORMATION
  Report Type: 
  Country: None (occurrence: None)
  Receive Date: 20120719
  Receipt Date: 20120713
  Transmission Date: 20120928
  Serious: Yes (Hospitalization)
  Sender: FDA-Public Use
  Company Number: US-B.I. PHARMACEUTICALS,INC./RIDGEFIELD-2012-BP-15664BP

PATIENT
  Sex: Female

DRUGS (6)
  1. DILAUDID [Concomitant]
  2. MS CONTIN [Concomitant]
     Dosage: 120 MG
  3. LEVOTHYROXINE SODIUM [Concomitant]
     Dosage: 112 MCG
  4. ZANTAC [Suspect]
  5. EFFEXOR XR [Concomitant]
     Dosage: 150 MG
  6. XANAX [Concomitant]

REACTIONS (1)
  - DRUG HYPERSENSITIVITY [None]
